FAERS Safety Report 4377939-9 (Version None)
Quarter: 2004Q2

REPORT INFORMATION
  Report Type: 
  Country: None (occurrence: None)
  Receive Date: 20040601
  Receipt Date: 20040218
  Transmission Date: 20050107
  Serious: No
  Sender: FDA-Public Use
  Company Number: WAES 0402USA01387

PATIENT
  Age: 70 Year
  Sex: Male

DRUGS (2)
  1. ZETIA [Suspect]
     Dosage: 10MG, DAILY; PO
     Route: 048
  2. ZOCOR [Concomitant]

REACTIONS (1)
  - BLOOD TRIGLYCERIDES INCREASED [None]
